FAERS Safety Report 9477288 (Version 2)
Quarter: 2013Q4

REPORT INFORMATION
  Report Type: Spontaneous
  Country: IT (occurrence: IT)
  Receive Date: 20130826
  Receipt Date: 20131029
  Transmission Date: 20140711
  Serious: Yes (Hospitalization)
  Sender: FDA-Public Use
  Company Number: IT-MYLANLABS-2013S1018360

PATIENT
  Age: 58 Year
  Sex: Male

DRUGS (8)
  1. ATENOLOL [Suspect]
     Indication: HYPERTENSION
     Route: 048
     Dates: start: 20070101, end: 20130620
  2. KCL [Suspect]
     Indication: HYPERTENSION
     Route: 048
     Dates: start: 20070101, end: 20130620
  3. DRONEDARONE HYDROCHLORIDE [Suspect]
     Indication: HYPERTENSION
     Route: 048
     Dates: start: 20070101, end: 20130620
  4. LASIX [Concomitant]
     Indication: PRODUCT USED FOR UNKNOWN INDICATION
  5. COUMADIN [Concomitant]
     Indication: PRODUCT USED FOR UNKNOWN INDICATION
  6. CRESTOR [Concomitant]
     Indication: DYSLIPIDAEMIA
  7. PANTORC [Concomitant]
     Indication: PRODUCT USED FOR UNKNOWN INDICATION
  8. FELODIPINE [Concomitant]
     Indication: PRODUCT USED FOR UNKNOWN INDICATION

REACTIONS (2)
  - Hyperkalaemia [Recovered/Resolved with Sequelae]
  - Nodal arrhythmia [Recovered/Resolved with Sequelae]
